FAERS Safety Report 5391474-0 (Version None)
Quarter: 2007Q3

REPORT INFORMATION
  Report Type: 
  Country: None (occurrence: None)
  Receive Date: 20070719
  Receipt Date: 20070711
  Transmission Date: 20080115
  Serious: Yes (Hospitalization)
  Sender: FDA-Public Use
  Company Number: AT-AMGEN-US223841

PATIENT
  Age: 42 Year
  Sex: Female
  Weight: 55 kg

DRUGS (4)
  1. ENBREL [Suspect]
     Indication: PSORIATIC ARTHROPATHY
     Route: 058
     Dates: start: 20070412, end: 20070416
  2. ENBREL [Suspect]
     Dates: start: 20070521, end: 20070611
  3. EBETREXAT [Suspect]
     Indication: PSORIATIC ARTHROPATHY
     Dates: start: 20061130, end: 20070516
  4. FOLIC ACID [Concomitant]
     Indication: PSORIATIC ARTHROPATHY
     Dates: start: 20061130, end: 20070516

REACTIONS (2)
  - HAEMATOMA [None]
  - MUSCLE HAEMORRHAGE [None]
